FAERS Safety Report 8177579-X (Version None)
Quarter: 2012Q1

REPORT INFORMATION
  Report Type: 
  Country: None (occurrence: None)
  Receive Date: 20120301
  Receipt Date: 20120216
  Transmission Date: 20120608
  Serious: Yes (Other)
  Sender: FDA-Public Use
  Company Number: PHHY2012ES013319

PATIENT

DRUGS (1)
  1. TASIGNA [Suspect]
     Indication: ACUTE LYMPHOCYTIC LEUKAEMIA
     Dosage: UNK UKN, UNK

REACTIONS (3)
  - MALIGNANT ASCITES [None]
  - DRUG INEFFECTIVE [None]
  - ACUTE LYMPHOCYTIC LEUKAEMIA [None]
